FAERS Safety Report 14619567 (Version 1)
Quarter: 2018Q1

REPORT INFORMATION
  Report Type: Spontaneous
  Country: US (occurrence: US)
  Receive Date: 20180309
  Receipt Date: 20180309
  Transmission Date: 20180509
  Serious: Yes (Hospitalization, Disabling, Other)
  Sender: FDA-Public Use
  Company Number: None

PATIENT
  Age: 49 Year
  Sex: Female
  Weight: 57.6 kg

DRUGS (12)
  1. ELMIRON [Concomitant]
     Active Substance: PENTOSAN POLYSULFATE SODIUM
  2. DRAMAMINE [Concomitant]
     Active Substance: DIMENHYDRINATE
  3. POTASSIUM [Concomitant]
     Active Substance: POTASSIUM
  4. ATORVASTATIN [Concomitant]
     Active Substance: ATORVASTATIN
  5. GABAPENTIN. [Concomitant]
     Active Substance: GABAPENTIN
  6. ESTRADIOL. [Concomitant]
     Active Substance: ESTRADIOL
  7. BENLYSTA [Suspect]
     Active Substance: BELIMUMAB
     Indication: SYSTEMIC LUPUS ERYTHEMATOSUS
     Dosage: OTHER ROUTE:INFUSION?
     Dates: start: 20180209, end: 20180210
  8. LEVOTHYROXINE. [Concomitant]
     Active Substance: LEVOTHYROXINE
  9. OXYCODONE [Concomitant]
     Active Substance: OXYCODONE
  10. METHOTREXATE. [Concomitant]
     Active Substance: METHOTREXATE
  11. PROGESTERONE. [Concomitant]
     Active Substance: PROGESTERONE
  12. BABY ASPIRIN 81MG [Concomitant]

REACTIONS (10)
  - Swelling face [None]
  - Tachycardia [None]
  - Blood potassium decreased [None]
  - Bone pain [None]
  - Vertigo [None]
  - Disturbance in attention [None]
  - Chest pain [None]
  - Memory impairment [None]
  - Hypersomnia [None]
  - Erythema [None]

NARRATIVE: CASE EVENT DATE: 20180209
